FAERS Safety Report 9169507 (Version 2)
Quarter: 2013Q4

REPORT INFORMATION
  Report Type: Report from Study
  Country: US (occurrence: US)
  Receive Date: 20130318
  Receipt Date: 20131105
  Transmission Date: 20140711
  Serious: Yes (Hospitalization, Other)
  Sender: FDA-Public Use
  Company Number: US-ELI_LILLY_AND_COMPANY-US201203003176

PATIENT
  Age: 61 Year
  Sex: Female

DRUGS (2)
  1. TERIPARATIDE [Suspect]
     Indication: OSTEOPOROSIS
     Dosage: 20 UG, QD
     Route: 065
     Dates: start: 20120305
  2. TERIPARATIDE [Suspect]
     Dosage: 20 UG, QD
     Route: 065

REACTIONS (6)
  - Thrombotic thrombocytopenic purpura [Unknown]
  - Gastrointestinal infection [Unknown]
  - Organ failure [Unknown]
  - Pain [Unknown]
  - Nausea [Recovered/Resolved]
  - Memory impairment [Unknown]
